FAERS Safety Report 9318998 (Version 2)
Quarter: 2013Q3

REPORT INFORMATION
  Report Type: Report from Study
  Country: JP (occurrence: JP)
  Receive Date: 20130530
  Receipt Date: 20130812
  Transmission Date: 20140515
  Serious: Yes (Other)
  Sender: FDA-Public Use
  Company Number: JP-BRISTOL-MYERS SQUIBB COMPANY-15293848

PATIENT
  Age: 68 Year
  Sex: Female
  Weight: 54 kg

DRUGS (22)
  1. BARACLUDE [Suspect]
     Indication: CHRONIC HEPATITIS B
     Route: 048
     Dates: start: 20070203
  2. EPINASTINE HCL [Concomitant]
     Dosage: TAB
     Route: 048
  3. SENNOSIDES A AND B [Concomitant]
     Indication: CONSTIPATION
     Dosage: TAB 01FEB2007-15MAY2007.?18FEB2009-18FEB2010.
     Route: 048
     Dates: start: 20070201
  4. AMLODIPINE [Concomitant]
     Indication: HYPERTENSION
     Dosage: TAB
     Route: 048
     Dates: start: 20090218, end: 20100218
  5. ALDACTONE-A [Concomitant]
     Route: 048
     Dates: start: 20100218
  6. LIVACT [Concomitant]
     Indication: CHRONIC HEPATITIS B
     Dosage: GRAN
     Route: 048
     Dates: end: 20090721
  7. BROTIZOLAM [Concomitant]
     Indication: INSOMNIA
     Dosage: TAB
     Route: 048
     Dates: start: 20090218, end: 20100218
  8. LACTULOSE (GEN) SYRUP [Concomitant]
     Indication: CHRONIC HEPATITIS B
     Route: 048
     Dates: end: 20100216
  9. SHAKUYAKU-KANZO-TO [Concomitant]
     Indication: MUSCLE SPASMS
     Route: 048
     Dates: start: 20091222, end: 20100216
  10. PEON [Concomitant]
     Dosage: TAB
     Route: 048
  11. MUCOSTA [Concomitant]
     Route: 048
  12. ONEALFA [Concomitant]
     Route: 048
  13. LOXONIN [Concomitant]
     Route: 048
     Dates: start: 20091126
  14. TIZANIDINE HCL [Concomitant]
     Dosage: TAB
     Route: 048
  15. ADELAVIN [Concomitant]
     Indication: CHRONIC HEPATITIS B
     Dosage: INJ?2-3 TIMES WEEKLY
     Route: 042
     Dates: start: 20090218
  16. VEEN-D [Concomitant]
     Indication: CHRONIC HEPATITIS B
     Dosage: INJ
     Route: 042
     Dates: start: 20090409, end: 20090411
  17. AMINO ACID SOLUTION [Concomitant]
     Indication: CHRONIC HEPATITIS B
     Dosage: INJ?2-3 TIMES DAILY
     Route: 042
     Dates: start: 20080218, end: 20080303
  18. AMMONIUM GLYCYRRHIZINATE [Concomitant]
     Indication: CHRONIC HEPATITIS B
     Dosage: 2-3 TIMES DAILY
     Route: 042
     Dates: start: 20090218
  19. GLYCINE [Concomitant]
     Indication: CHRONIC HEPATITIS B
     Route: 042
     Dates: start: 20090218
  20. L-CYSTEINE ETHYL ESTER HCL [Concomitant]
     Indication: CHRONIC HEPATITIS B
     Dosage: 2-3 TIMES
     Route: 042
     Dates: start: 20090218
  21. SOLITA-T [Concomitant]
     Indication: CHRONIC HEPATITIS B
     Dosage: SOLITA-T NO 3G INJ 1-2 TIME WEEKLY
     Route: 042
     Dates: start: 20070104, end: 20070515
  22. ADELAVIN [Concomitant]
     Indication: CHRONIC HEPATITIS B
     Dosage: ADELAVIN INJ, 2ML/D 1-2 TIMES WEEKLY
     Route: 042
     Dates: start: 20070104, end: 20070515

REACTIONS (1)
  - Hepatocellular carcinoma [Not Recovered/Not Resolved]
